FAERS Safety Report 12099296 (Version 1)
Quarter: 2016Q1

REPORT INFORMATION
  Report Type: Spontaneous
  Country: US (occurrence: US)
  Receive Date: 20160222
  Receipt Date: 20160222
  Transmission Date: 20160526
  Serious: No
  Sender: FDA-Public Use
  Company Number: US-PFIZER INC-2016097606

PATIENT
  Age: 44 Year
  Sex: Male

DRUGS (4)
  1. KEFLEX [Suspect]
     Active Substance: CEPHALEXIN
     Dosage: UNK
  2. MOTRIN [Suspect]
     Active Substance: IBUPROFEN
     Dosage: UNK
  3. ULTRAM [Suspect]
     Active Substance: TRAMADOL HYDROCHLORIDE
     Dosage: UNK
  4. IBUPROFEN. [Suspect]
     Active Substance: IBUPROFEN
     Dosage: UNK

REACTIONS (1)
  - Drug hypersensitivity [Unknown]
